FAERS Safety Report 7451979-5 (Version None)
Quarter: 2011Q2

REPORT INFORMATION
  Report Type: 
  Country: None (occurrence: None)
  Receive Date: 20110502
  Receipt Date: 20110430
  Transmission Date: 20111010
  Serious: Yes (Hospitalization, Other)
  Sender: FDA-Public Use
  Company Number: US-PFIZER INC-2011093176

PATIENT
  Sex: Female
  Weight: 72.562 kg

DRUGS (6)
  1. CHANTIX [Suspect]
     Indication: SMOKING CESSATION THERAPY
     Dosage: 0.5 MG, 2X/DAY
     Route: 048
     Dates: start: 20110420, end: 20110425
  2. XANAX [Concomitant]
     Dosage: UNK
  3. ZOCOR [Concomitant]
     Dosage: UNK
  4. PRISTIQ [Concomitant]
     Dosage: UNK
  5. PREVACID [Concomitant]
     Dosage: UNK
  6. AMBIEN [Concomitant]
     Dosage: UNK

REACTIONS (6)
  - PRESYNCOPE [None]
  - URTICARIA [None]
  - PRURITUS [None]
  - HEART RATE INCREASED [None]
  - RASH [None]
  - WHITE BLOOD CELL COUNT INCREASED [None]
